FAERS Safety Report 5994109-9 (Version None)
Quarter: 2008Q4

REPORT INFORMATION
  Report Type: 
  Country: None (occurrence: None)
  Receive Date: 20081212
  Receipt Date: 20081203
  Transmission Date: 20090506
  Serious: Yes (Hospitalization)
  Sender: FDA-Public Use
  Company Number: CA-JNJFOC-20081201206

PATIENT
  Sex: Male
  Weight: 75.5 kg

DRUGS (5)
  1. REMICADE [Suspect]
     Dosage: 3RD DOSE, WEEK 6 THEN FREQUENCY WILL BE EVERY 8 WEEKS
     Route: 042
  2. REMICADE [Suspect]
     Dosage: 2ND DOSE AT WEEK 2
     Route: 042
  3. REMICADE [Suspect]
     Indication: CROHN'S DISEASE
     Dosage: 1ST DOSE AT WEEK 0
     Route: 042
  4. BENADRYL [Concomitant]
     Indication: PREMEDICATION
     Route: 042
  5. SOLU-CORTEF [Concomitant]
     Indication: PREMEDICATION
     Route: 042

REACTIONS (2)
  - LIPASE INCREASED [None]
  - PYREXIA [None]
